FAERS Safety Report 9393226 (Version 2)
Quarter: 2013Q3

REPORT INFORMATION
  Report Type: Report from Study
  Country: PR (occurrence: PR)
  Receive Date: 20130710
  Receipt Date: 20130830
  Transmission Date: 20140515
  Serious: Yes (Life-Threatening, Other)
  Sender: FDA-Public Use
  Company Number: PR-ABBOTT-13P-131-1113812-00

PATIENT
  Age: 41 Year
  Sex: Male

DRUGS (7)
  1. HUMIRA [Suspect]
     Indication: CROHN^S DISEASE
     Route: 058
     Dates: start: 20121217, end: 201306
  2. ZANTAC [Concomitant]
     Indication: CROHN^S DISEASE
     Route: 048
     Dates: start: 2003
  3. IMURAN [Concomitant]
     Indication: CROHN^S DISEASE
     Route: 048
     Dates: start: 2006
  4. PREDNISONE [Concomitant]
     Indication: CROHN^S DISEASE
     Route: 048
     Dates: start: 2006
  5. KLONOPIN [Concomitant]
     Indication: DEPRESSION
     Dosage: 1 TABLET AT BEDTIME
     Route: 048
     Dates: start: 2009
  6. AMBIEN [Concomitant]
     Indication: DEPRESSION
     Dosage: 1 TABLET AT BEDTIME
     Route: 048
     Dates: start: 2009
  7. PAXIL [Concomitant]
     Indication: DEPRESSION
     Dosage: 1 TABLET AT BEDTIME
     Route: 048
     Dates: start: 2009

REACTIONS (15)
  - Cerebral thrombosis [Unknown]
  - Dizziness [Recovered/Resolved]
  - Injection site discolouration [Unknown]
  - Pruritus [Unknown]
  - Pain [Unknown]
  - Headache [Recovered/Resolved]
  - Rash [Unknown]
  - Cerebral thrombosis [Not Recovered/Not Resolved]
  - Somnolence [Recovered/Resolved]
  - Pruritus [Recovered/Resolved]
  - Injection site pruritus [Recovered/Resolved]
  - Injection site mass [Recovered/Resolved]
  - Injection site rash [Recovered/Resolved]
  - Injection site bruising [Recovered/Resolved]
  - Hypertriglyceridaemia [Not Recovered/Not Resolved]
